FAERS Safety Report 4538807-2 (Version None)
Quarter: 2004Q4

REPORT INFORMATION
  Report Type: 
  Country: None (occurrence: None)
  Receive Date: 20041222
  Receipt Date: 20041207
  Transmission Date: 20050328
  Serious: Yes (Other)
  Sender: FDA-Public Use
  Company Number: US_0412108888

PATIENT
  Age: 53 Year
  Sex: Female
  Weight: 57 kg

DRUGS (7)
  1. PEMETREXED [Suspect]
     Indication: NON-SMALL CELL LUNG CANCER
     Dosage: 500 MG/M2
     Dates: start: 20040816, end: 20040907
  2. CARBOPLATIN [Suspect]
     Indication: NON-SMALL CELL LUNG CANCER
     Dosage: 666 MG
     Dates: start: 20040816, end: 20040907
  3. RADIATION THERAPY [Suspect]
     Indication: NON-SMALL CELL LUNG CANCER
     Dosage: 200 GRAY/ 5 WEEK
     Dates: start: 20040816, end: 20040924
  4. ALBUTEROL [Concomitant]
  5. VITAMIN B-12 [Concomitant]
  6. COUMADIN [Concomitant]
  7. FOLIC ACID [Concomitant]

REACTIONS (8)
  - DRUG TOXICITY [None]
  - HAEMOGLOBIN DECREASED [None]
  - INFLAMMATION [None]
  - MALIGNANT NEOPLASM PROGRESSION [None]
  - NON-SMALL CELL LUNG CANCER [None]
  - PLATELET COUNT INCREASED [None]
  - POST PROCEDURAL COMPLICATION [None]
  - RADIATION PNEUMONITIS [None]
